FAERS Safety Report 6510244-0 (Version None)
Quarter: 2009Q4

REPORT INFORMATION
  Report Type: 
  Country: None (occurrence: None)
  Receive Date: 20091222
  Receipt Date: 20091211
  Transmission Date: 20100525
  Serious: Yes (Hospitalization)
  Sender: FDA-Public Use
  Company Number: BR-ELI_LILLY_AND_COMPANY-BR200910004616

PATIENT
  Sex: Female
  Weight: 85 kg

DRUGS (9)
  1. BYETTA [Suspect]
     Indication: DIABETES MELLITUS
     Dosage: 5 UG, 2/D
     Route: 058
     Dates: start: 20090912
  2. BYETTA [Suspect]
     Dosage: 10 UG, DAILY (1/D)
     Route: 058
  3. GLIFAGE [Concomitant]
     Indication: DIABETES MELLITUS
     Dosage: 1700 MG, DAILY (1/D)
     Route: 048
  4. GLYBURIDE [Concomitant]
     Indication: DIABETES MELLITUS
     Dosage: UNK, DAILY (1/D)
     Route: 065
  5. HUMULIN N [Concomitant]
     Indication: DIABETES MELLITUS
     Dosage: 30 U, DAILY (1/D)
     Route: 058
  6. MONOCORDIL [Concomitant]
     Indication: ANGINA PECTORIS
     Dosage: 40 MG, 2/D
     Route: 048
  7. ATENOLOL [Concomitant]
     Indication: HYPERTENSION
     Dosage: 50 MG, DAILY (1/D)
     Route: 048
  8. DIOVAN [Concomitant]
     Indication: HYPERTENSION
     Dosage: 80 MG, EACH MORNING
     Route: 048
  9. PANTOPRAZOL [Concomitant]
     Indication: GASTRIC DISORDER
     Dosage: 40 MG, DAILY (1/D)
     Route: 065

REACTIONS (8)
  - ABDOMINAL PAIN UPPER [None]
  - HYPERGLYCAEMIA [None]
  - HYPERTENSION [None]
  - LIMB INJURY [None]
  - NAUSEA [None]
  - OFF LABEL USE [None]
  - PAIN IN EXTREMITY [None]
  - WEIGHT DECREASED [None]
